FAERS Safety Report 20663723 (Version 1)
Quarter: 2022Q2

REPORT INFORMATION
  Report Type: Spontaneous
  Country: US (occurrence: None)
  Receive Date: 20220401
  Receipt Date: 20220401
  Transmission Date: 20220721
  Serious: Yes (Life-Threatening, Disabling)
  Sender: FDA-Public Use
  Company Number: None

PATIENT
  Age: 26 Year
  Sex: Female
  Weight: 73.48 kg

DRUGS (1)
  1. PARAGARD T 380A [Suspect]
     Active Substance: COPPER

REACTIONS (22)
  - Skin necrosis [None]
  - Skin discolouration [None]
  - Exposure during pregnancy [None]
  - Rash [None]
  - Fungal infection [None]
  - Lichen planus [None]
  - Complication associated with device [None]
  - Decreased appetite [None]
  - Headache [None]
  - Fatigue [None]
  - Dizziness [None]
  - Irritability [None]
  - Alopecia [None]
  - Weight decreased [None]
  - Visual impairment [None]
  - Abdominal discomfort [None]
  - Arthralgia [None]
  - Bone pain [None]
  - Autoimmune disorder [None]
  - Near death experience [None]
  - Metal poisoning [None]
  - Product communication issue [None]

NARRATIVE: CASE EVENT DATE: 20211221
